FAERS Safety Report 19188016 (Version 2)
Quarter: 2021Q4

REPORT INFORMATION
  Report Type: Spontaneous
  Country: PL (occurrence: PL)
  Receive Date: 20210427
  Receipt Date: 20211011
  Transmission Date: 20220304
  Serious: Yes (Life-Threatening, Hospitalization, Other)
  Sender: FDA-Public Use
  Company Number: PL-EMA-DD-20210112-FAIZAN_M-093128

PATIENT
  Age: 69 Year
  Sex: Female

DRUGS (13)
  1. ROSUVASTATIN [Interacting]
     Active Substance: ROSUVASTATIN
     Indication: Hypertension
     Dosage: 10 MG, 1D
     Route: 048
  2. PROPAFENONE [Interacting]
     Active Substance: PROPAFENONE
     Indication: Atrial fibrillation
     Dosage: 300 MG, PRN
     Route: 048
  3. ITRACONAZOLE [Interacting]
     Active Substance: ITRACONAZOLE
     Indication: Tinea versicolour
     Dosage: 200 MG, 1D (100 MILLIGRAM, BID)
     Route: 048
  4. METOPROLOL [Interacting]
     Active Substance: METOPROLOL
     Indication: Hypertension
     Dosage: 200 MG, QD
     Route: 048
  5. METOPROLOL [Interacting]
     Active Substance: METOPROLOL
     Dosage: AT A DOSE OF 100 MG
     Route: 048
  6. AMLODIPINE\INDAPAMIDE\PERINDOPRIL [Interacting]
     Active Substance: AMLODIPINE\INDAPAMIDE\PERINDOPRIL
     Indication: Hypertension
     Dosage: 1 DF, 1X/DAY(IN THE MORNING)
     Route: 048
  7. NIMESULIDE [Interacting]
     Active Substance: NIMESULIDE
     Indication: Antiinflammatory therapy
     Dosage: 100 MILLIGRAM, Q12H
     Route: 048
  8. NIMESULIDE [Interacting]
     Active Substance: NIMESULIDE
     Indication: Pain
  9. KETOPROFEN [Suspect]
     Active Substance: KETOPROFEN
     Indication: Analgesic therapy
     Dosage: UNK
     Route: 048
  10. KETOPROFEN [Suspect]
     Active Substance: KETOPROFEN
     Indication: Arthralgia
     Dosage: TAKEN AT TIMES OF SEVERE ARTHRALGIA
     Route: 048
  11. ASPIRIN [Interacting]
     Active Substance: ASPIRIN
     Indication: Viral infection
     Dosage: LAST 3 DAYS DUE TO INFECTION
     Route: 048
  12. DABIGATRAN [Interacting]
     Active Substance: DABIGATRAN
     Indication: Anticoagulant therapy
     Dosage: 150 MG, BID
     Route: 048
  13. DABIGATRAN [Interacting]
     Active Substance: DABIGATRAN
     Indication: Prophylaxis

REACTIONS (24)
  - Bradyarrhythmia [Recovered/Resolved]
  - Product prescribing issue [Recovered/Resolved]
  - Anaemia [Recovered/Resolved]
  - Circumstance or information capable of leading to medication error [Recovering/Resolving]
  - Gastritis erosive [Recovered/Resolved]
  - Syncope [Recovered/Resolved]
  - Blood pressure decreased [Recovered/Resolved]
  - Drug ineffective [Unknown]
  - Gastrointestinal haemorrhage [Recovered/Resolved]
  - Cardiomyopathy [Recovered/Resolved]
  - Asthenia [Recovered/Resolved]
  - Drug interaction [Recovered/Resolved]
  - Incorrect dose administered [Unknown]
  - Pallor [Recovered/Resolved]
  - Haemorrhage [Unknown]
  - Atrioventricular block complete [Recovered/Resolved]
  - Leukocytosis [Recovered/Resolved]
  - Drug-disease interaction [Recovered/Resolved]
  - Troponin increased [Recovered/Resolved]
  - Duplicate therapy error [Recovered/Resolved]
  - Product dispensing issue [Unknown]
  - Product use issue [Unknown]
  - Intentional product use issue [Unknown]
  - Off label use [Unknown]

NARRATIVE: CASE EVENT DATE: 20200101
